FAERS Safety Report 4446746-0 (Version None)
Quarter: 2004Q3

REPORT INFORMATION
  Report Type: 
  Country: None (occurrence: None)
  Receive Date: 20040910
  Receipt Date: 20040826
  Transmission Date: 20050211
  Serious: Yes (Death)
  Sender: FDA-Public Use
  Company Number: 2004060473

PATIENT
  Age: 86 Year
  Sex: Male

DRUGS (3)
  1. CARDURA [Suspect]
     Indication: BENIGN PROSTATIC HYPERPLASIA
     Dosage: 2 MG (2 MG, 1 IN 1 D), ORAL
     Route: 048
     Dates: start: 19960327
  2. AMIODARONE HCL [Concomitant]
  3. ISOSORBIDE DINITRATE [Concomitant]

REACTIONS (2)
  - ABDOMINAL PAIN UPPER [None]
  - CARDIAC ARREST [None]
